FAERS Safety Report 6419496-9 (Version None)
Quarter: 2009Q4

REPORT INFORMATION
  Report Type: 
  Country: None (occurrence: None)
  Receive Date: 20091029
  Receipt Date: 20091022
  Transmission Date: 20100525
  Serious: Yes (Other)
  Sender: FDA-Public Use
  Company Number: GBWYE721801DEC06

PATIENT
  Age: 50 Year
  Sex: Male
  Weight: 67.2 kg

DRUGS (15)
  1. RAPAMUNE [Suspect]
     Indication: RENAL TRANSPLANT
     Dosage: 3 MG, FREQUENCY UNSPECIFIED
     Route: 048
     Dates: start: 20060914, end: 20061030
  2. RAPAMUNE [Suspect]
     Indication: PANCREAS TRANSPLANT
  3. ATENOLOL [Concomitant]
     Indication: BLOOD PRESSURE
     Route: 048
     Dates: start: 20060329
  4. RECORMON [Suspect]
     Indication: ANAEMIA
     Route: 058
     Dates: start: 20060925
  5. ADCAL [Concomitant]
     Dosage: 1 DF 3/ DAYS
     Route: 048
  6. FUROSEMIDE [Concomitant]
     Route: 048
  7. AMLODIPINE [Concomitant]
  8. MYCOPHENOLATE MOFETIL [Concomitant]
     Indication: RENAL TRANSPLANT
     Route: 048
     Dates: start: 20061030
  9. MYCOPHENOLATE MOFETIL [Concomitant]
     Indication: PANCREAS TRANSPLANT
  10. NEORECORMON [Concomitant]
     Indication: ANAEMIA
     Route: 058
     Dates: start: 20060925
  11. PREDNISOLONE [Concomitant]
     Route: 048
  12. SODIUM BICARBONATE IN PLASTIC CONTAINER [Concomitant]
     Dates: start: 20060827
  13. TACROLIMUS [Concomitant]
     Route: 048
     Dates: start: 20060922
  14. ALFACALCIDOL [Concomitant]
     Indication: HYPOVITAMINOSIS
     Route: 048
     Dates: start: 20040223
  15. LANSOPRAZOLE [Concomitant]
     Route: 048

REACTIONS (4)
  - BLOOD CREATININE INCREASED [None]
  - RENAL IMPAIRMENT [None]
  - RENAL TUBULAR NECROSIS [None]
  - TUBULOINTERSTITIAL NEPHRITIS [None]
